APPROVED DRUG PRODUCT: ISOSULFAN BLUE
Active Ingredient: ISOSULFAN BLUE
Strength: 50MG/5ML (10MG/ML)
Dosage Form/Route: SOLUTION;SUBCUTANEOUS
Application: A210558 | Product #001
Applicant: SOMERSET THERAPEUTICS LLC
Approved: Jul 12, 2019 | RLD: No | RS: No | Type: DISCN